FAERS Safety Report 6736377-1 (Version None)
Quarter: 2010Q2

REPORT INFORMATION
  Report Type: 
  Country: None (occurrence: None)
  Receive Date: 20100521
  Receipt Date: 20100515
  Transmission Date: 20101027
  Serious: Yes (Hospitalization)
  Sender: FDA-Public Use
  Company Number: US-JNJFOC-20100506713

PATIENT
  Age: 16 Month
  Sex: Female
  Weight: 10.89 kg

DRUGS (4)
  1. CONCENTRATED MOTRIN INFANTS' DYE-FREE [Suspect]
     Route: 048
  2. CONCENTRATED MOTRIN INFANTS' DYE-FREE [Suspect]
     Indication: PYREXIA
     Route: 048
  3. CONCENTRATED TYLENOL INFANTS' DYE FREE CHERRY [Suspect]
     Route: 048
  4. CONCENTRATED TYLENOL INFANTS' DYE FREE CHERRY [Suspect]
     Indication: PYREXIA
     Route: 048

REACTIONS (3)
  - DRUG INEFFECTIVE [None]
  - PRODUCT QUALITY ISSUE [None]
  - URINARY TRACT INFECTION [None]
